FAERS Safety Report 7583099-3 (Version None)
Quarter: 2011Q2

REPORT INFORMATION
  Report Type: 
  Country: None (occurrence: None)
  Receive Date: 20110527
  Receipt Date: 20110214
  Transmission Date: 20111010
  Serious: Yes (Other)
  Sender: FDA-Public Use
  Company Number: US201005000616

PATIENT
  Age: 60 Year
  Sex: Male

DRUGS (18)
  1. DIURETICS [Concomitant]
  2. ATACAND [Concomitant]
  3. EXENATIDE PEN (EXENATIDE PEN) [Concomitant]
  4. ASPIRIN/USA/(ACETYLSALICYLIC ACID) [Concomitant]
  5. GLYBURIDE [Concomitant]
  6. ACCUPRIL [Concomitant]
  7. GLYBURIDE [Concomitant]
  8. LASIX/USA/ (FUROSEMIDE) [Concomitant]
  9. TOPROL-XL [Concomitant]
  10. CALCIUM (CALCIUM) [Concomitant]
  11. ANTIBIOTICS [Concomitant]
  12. AVANDIA [Concomitant]
  13. VERAPAMIL HYDROCHLORIDE [Concomitant]
  14. ZETIA [Concomitant]
  15. INSULIN (INSULIN) [Concomitant]
  16. BYETTA [Suspect]
     Indication: TYPE 2 DIABETES MELLITUS
     Dosage: 5 UG, 2/D, SUBCUTANEOUS, 10 UG, 2/D, SUBCUTANEOUS
     Route: 058
     Dates: start: 20060321, end: 20060425
  17. BYETTA [Suspect]
     Indication: TYPE 2 DIABETES MELLITUS
     Dosage: 5 UG, 2/D, SUBCUTANEOUS, 10 UG, 2/D, SUBCUTANEOUS
     Route: 058
     Dates: start: 20060426, end: 20081101
  18. CLONIDINE [Concomitant]

REACTIONS (4)
  - PANCREATITIS [None]
  - OFF LABEL USE [None]
  - RENAL FAILURE [None]
  - WEIGHT DECREASED [None]
